FAERS Safety Report 8305126-8 (Version None)
Quarter: 2012Q2

REPORT INFORMATION
  Report Type: 
  Country: None (occurrence: None)
  Receive Date: 20120423
  Receipt Date: 20120412
  Transmission Date: 20120825
  Serious: Yes (Hospitalization, Disabling, Other)
  Sender: FDA-Public Use
  Company Number: NL-ASTRAZENECA-2012SE19255

PATIENT
  Sex: Female
  Weight: 70 kg

DRUGS (3)
  1. SEROQUEL [Suspect]
     Indication: BURNOUT SYNDROME
     Dosage: UP TO 1200 MG PER DAY
     Route: 048
     Dates: start: 20060101
  2. SEROQUEL [Suspect]
     Route: 048
     Dates: start: 20110901, end: 20120201
  3. SEROQUEL [Suspect]
     Route: 048
     Dates: start: 20110901

REACTIONS (8)
  - FALL [None]
  - JAW FRACTURE [None]
  - SYNCOPE [None]
  - LOWER LIMB FRACTURE [None]
  - OFF LABEL USE [None]
  - HAEMATOMA [None]
  - FACIAL BONES FRACTURE [None]
  - HAND FRACTURE [None]
